APPROVED DRUG PRODUCT: DIDANOSINE
Active Ingredient: DIDANOSINE
Strength: 125MG
Dosage Form/Route: CAPSULE, DELAYED REL PELLETS;ORAL
Application: A090094 | Product #001
Applicant: AUROBINDO PHARMA LTD
Approved: Sep 24, 2008 | RLD: No | RS: No | Type: DISCN